FAERS Safety Report 25627248 (Version 1)
Quarter: 2025Q3

REPORT INFORMATION
  Report Type: Spontaneous
  Country: US (occurrence: None)
  Receive Date: 20250730
  Receipt Date: 20250730
  Transmission Date: 20251021
  Serious: Yes (Other)
  Sender: FDA-CTU
  Company Number: None

PATIENT
  Age: 44 Year
  Sex: Female
  Weight: 81 kg

DRUGS (1)
  1. CETIRIZINE [Suspect]
     Active Substance: CETIRIZINE HYDROCHLORIDE
     Indication: Seasonal allergy
     Dosage: FREQUENCY : DAILY;?
     Route: 048
     Dates: start: 20220202, end: 20250722

REACTIONS (4)
  - Pruritus [None]
  - Skin disorder [None]
  - Urticaria [None]
  - Scratch [None]

NARRATIVE: CASE EVENT DATE: 20250723
